FAERS Safety Report 5192828-8 (Version None)
Quarter: 2006Q4

REPORT INFORMATION
  Report Type: 
  Country: None (occurrence: None)
  Receive Date: 20061228
  Receipt Date: 20051122
  Transmission Date: 20070319
  Serious: No
  Sender: FDA-Public Use
  Company Number: US-GLAXOSMITHKLINE-A0583501A

PATIENT
  Age: 68 Year
  Sex: Female

DRUGS (15)
  1. FLONASE [Suspect]
     Dosage: 2SPR TWICE PER DAY
     Route: 045
  2. AZMACORT [Concomitant]
  3. K-DUR 10 [Concomitant]
  4. CLONOPIN [Concomitant]
  5. EFFEXOR [Concomitant]
  6. SEREVENT [Concomitant]
  7. VICODIN [Concomitant]
  8. PRAVASTATIN [Concomitant]
  9. HYOSCYAMINE [Concomitant]
  10. FLEXERIL [Concomitant]
  11. VITAMINS [Concomitant]
  12. SYNTHROID [Concomitant]
  13. COUMADIN [Concomitant]
  14. SINEMET [Concomitant]
  15. XANAX [Concomitant]

REACTIONS (1)
  - DYSPNOEA [None]
